FAERS Safety Report 11108644 (Version 2)
Quarter: 2015Q2

REPORT INFORMATION
  Report Type: Spontaneous
  Country: US (occurrence: US)
  Receive Date: 20150513
  Receipt Date: 20150522
  Transmission Date: 20150821
  Serious: No
  Sender: FDA-Public Use
  Company Number: US-AMGEN-USASP2015045246

PATIENT
  Age: 47 Year
  Sex: Female

DRUGS (1)
  1. ENBREL [Suspect]
     Active Substance: ETANERCEPT
     Indication: RHEUMATOID ARTHRITIS
     Dosage: 50 MG, QWK
     Route: 065
     Dates: start: 20150501

REACTIONS (7)
  - Nervousness [Unknown]
  - Injection site discomfort [Unknown]
  - Fear of injection [Unknown]
  - Palpitations [Unknown]
  - Blood pressure increased [Unknown]
  - Hypoaesthesia [Unknown]
  - Device failure [Unknown]

NARRATIVE: CASE EVENT DATE: 20150508
